FAERS Safety Report 4917403-9 (Version None)
Quarter: 2006Q1

REPORT INFORMATION
  Report Type: 
  Country: None (occurrence: None)
  Receive Date: 20060221
  Receipt Date: 20060215
  Transmission Date: 20060701
  Serious: Yes (Other)
  Sender: FDA-Public Use
  Company Number: 2006002669

PATIENT
  Age: 24 Year
  Sex: Female
  Weight: 75 kg

DRUGS (1)
  1. AUGMENTIN '125' [Suspect]
     Dosage: 5TAB SINGLE DOSE
     Route: 048
     Dates: start: 20060214, end: 20060214

REACTIONS (3)
  - INTENTIONAL OVERDOSE [None]
  - NO ADVERSE DRUG EFFECT [None]
  - SUICIDE ATTEMPT [None]
